FAERS Safety Report 9062961 (Version 3)
Quarter: 2014Q1

REPORT INFORMATION
  Report Type: Spontaneous
  Country: US (occurrence: US)
  Receive Date: 20130213
  Receipt Date: 20140219
  Transmission Date: 20141002
  Serious: Yes (Life-Threatening, Hospitalization)
  Sender: FDA-Public Use
  Company Number: US-BAYER-2013-017143

PATIENT
  Age: 22 Year
  Sex: Female
  Weight: 55.33 kg

DRUGS (1)
  1. MIRENA [Suspect]
     Dosage: 20 MCG/24HR, CONT
     Route: 015
     Dates: start: 20110523, end: 20110706

REACTIONS (12)
  - Uterine perforation [None]
  - Pyrexia [None]
  - Pelvic pain [None]
  - Pain [None]
  - Injury [None]
  - General physical health deterioration [None]
  - Anxiety [None]
  - Anhedonia [None]
  - Device dislocation [None]
  - Fear [None]
  - Mental disorder [None]
  - Device issue [None]
